FAERS Safety Report 7656520-X (Version None)
Quarter: 2011Q3

REPORT INFORMATION
  Report Type: 
  Country: None (occurrence: None)
  Receive Date: 20110804
  Receipt Date: 20101011
  Transmission Date: 20111222
  Serious: No
  Sender: FDA-Public Use
  Company Number: US-BAUSCH-2010BL005774

PATIENT
  Age: 65 Year
  Sex: Female

DRUGS (6)
  1. OPCON-A [Suspect]
     Indication: EYE PRURITUS
     Route: 047
     Dates: start: 20091001
  2. OPCON-A [Suspect]
     Indication: OFF LABEL USE
     Route: 047
     Dates: start: 20091001
  3. OPCON-A [Suspect]
     Indication: DRY EYE
     Route: 047
     Dates: start: 20091001
  4. SYNTHROID [Concomitant]
     Indication: HYPOTHYROIDISM
  5. OPCON-A [Suspect]
     Indication: OCULAR HYPERAEMIA
     Route: 047
     Dates: start: 20091001
  6. BLINK GEL EYE DROPS [Concomitant]
     Indication: DRY EYE
     Route: 047

REACTIONS (1)
  - INSTILLATION SITE PAIN [None]
